FAERS Safety Report 25621123 (Version 1)
Quarter: 2025Q3

REPORT INFORMATION
  Report Type: Spontaneous
  Country: KR (occurrence: KR)
  Receive Date: 20250730
  Receipt Date: 20250730
  Transmission Date: 20251021
  Serious: Yes (Death, Other)
  Sender: AMGEN
  Company Number: KR-AMGEN-KORSP2025147951

PATIENT

DRUGS (1)
  1. ETANERCEPT [Suspect]
     Active Substance: ETANERCEPT
     Indication: Rheumatoid arthritis
     Route: 065

REACTIONS (18)
  - Death [Fatal]
  - Interstitial lung disease [Unknown]
  - Atypical mycobacterial infection [Unknown]
  - Cerebrovascular accident [Unknown]
  - Hepatitis B reactivation [Unknown]
  - Herpes zoster [Unknown]
  - Lymphoma [Unknown]
  - Neoplasm malignant [Unknown]
  - Pulmonary tuberculosis [Unknown]
  - Neutropenia [Unknown]
  - Pneumocystis jirovecii infection [Unknown]
  - Pulmonary embolism [Unknown]
  - Drug ineffective [Unknown]
  - Neoplasm [Unknown]
  - Hypertransaminasaemia [Unknown]
  - Fungal infection [Unknown]
  - Infusion site reaction [Unknown]
  - Injection site reaction [Unknown]
